FAERS Safety Report 4612940-9 (Version None)
Quarter: 2005Q1

REPORT INFORMATION
  Report Type: 
  Country: None (occurrence: None)
  Receive Date: 20050318
  Receipt Date: 20050309
  Transmission Date: 20050727
  Serious: Yes (Other)
  Sender: FDA-Public Use
  Company Number: CA-ROCHE-397855

PATIENT
  Sex: Male
  Weight: 57.5 kg

DRUGS (6)
  1. PEG-INTERFERON ALFA 2A (RO 25-8310) [Suspect]
     Dosage: PRE-FILLED SYRINGE.
     Route: 058
     Dates: start: 20040618, end: 20050128
  2. PEG-INTERFERON ALFA 2A (RO 25-8310) [Suspect]
     Route: 058
     Dates: start: 20050204
  3. RIBAVIRIN [Suspect]
     Route: 048
     Dates: start: 20040618
  4. THYROID DRUG NOS [Concomitant]
     Dosage: FOR FIVE YEARS (EST.).
  5. BETNOVATE CREAM [Concomitant]
     Dosage: BETNOVATE CREAM 1%.
     Dates: start: 20040803
  6. BENADRYL [Concomitant]

REACTIONS (3)
  - CELLULITIS [None]
  - PRURITUS [None]
  - RASH [None]
